FAERS Safety Report 20848879 (Version 1)
Quarter: 2022Q2

REPORT INFORMATION
  Report Type: Spontaneous
  Country: US (occurrence: None)
  Receive Date: 20220518
  Receipt Date: 20220518
  Transmission Date: 20220720
  Serious: Yes (Hospitalization)
  Sender: FDA-Public Use
  Company Number: None

PATIENT
  Age: 65 Year
  Sex: Male

DRUGS (1)
  1. CAPECITABINE [Suspect]
     Active Substance: CAPECITABINE
     Dosage: 1500MG BID ORAL??NOT STARTED?
     Route: 048

REACTIONS (4)
  - Fatigue [None]
  - Emotional disorder [None]
  - Colectomy [None]
  - Frequent bowel movements [None]

NARRATIVE: CASE EVENT DATE: 20220330
